APPROVED DRUG PRODUCT: BROMFENAC SODIUM
Active Ingredient: BROMFENAC SODIUM
Strength: EQ 0.07% ACID
Dosage Form/Route: SOLUTION/DROPS;OPHTHALMIC
Application: A207334 | Product #001 | TE Code: AB
Applicant: APOTEX INC
Approved: Jul 8, 2024 | RLD: No | RS: No | Type: RX